FAERS Safety Report 20420007 (Version 1)
Quarter: 2022Q1

REPORT INFORMATION
  Report Type: Spontaneous
  Country: US (occurrence: US)
  Receive Date: 20220203
  Receipt Date: 20220203
  Transmission Date: 20220424
  Serious: Yes (Other)
  Sender: FDA-Public Use
  Company Number: US-GLAXOSMITHKLINE-US2022GSK015895

PATIENT
  Sex: Female

DRUGS (8)
  1. RANITIDINE [Suspect]
     Active Substance: RANITIDINE
     Indication: Dyspepsia
     Dosage: 150 MG, QD, DAILY MORNING AND NIGHT
     Route: 065
     Dates: start: 200801, end: 201911
  2. RANITIDINE [Suspect]
     Active Substance: RANITIDINE
     Dosage: 300 MG, QD, DAILY MORNING AND NIGHT
     Route: 065
     Dates: start: 200801, end: 201911
  3. RANITIDINE [Suspect]
     Active Substance: RANITIDINE
     Indication: Dyspepsia
     Dosage: 150 MG, QD, DAILY MORNING AND NIGHT
     Route: 065
     Dates: start: 200801, end: 201911
  4. RANITIDINE [Suspect]
     Active Substance: RANITIDINE
     Dosage: 300 MG, QD, DAILY MORNING AND NIGHT
     Route: 065
     Dates: start: 200801, end: 201911
  5. ZANTAC [Suspect]
     Active Substance: RANITIDINE HYDROCHLORIDE
     Indication: Dyspepsia
     Dosage: 150 MG, QD, DAILY TOOK AT MORNING ANT AT NIGHT
     Route: 065
     Dates: start: 200801, end: 201911
  6. ZANTAC [Suspect]
     Active Substance: RANITIDINE HYDROCHLORIDE
     Dosage: 300 MG, QD, DAILY TOOK AT MORNING ANT AT NIGHT
     Route: 065
     Dates: start: 200801, end: 201911
  7. RANITIDINE [Suspect]
     Active Substance: RANITIDINE
     Indication: Dyspepsia
     Dosage: 150 MG, QD, DAILY TOOK AT MORNING ANT AT NIGHT
     Route: 065
     Dates: start: 200801, end: 201911
  8. RANITIDINE [Suspect]
     Active Substance: RANITIDINE
     Dosage: 300 MG, QD, DAILY TOOK AT MORNING ANT AT NIGHT
     Route: 065
     Dates: start: 200801, end: 201911

REACTIONS (7)
  - Bladder cancer [Unknown]
  - Chronic kidney disease [Unknown]
  - Hernia [Unknown]
  - Bladder operation [Unknown]
  - Peripheral swelling [Unknown]
  - Extremity necrosis [Unknown]
  - Poor peripheral circulation [Unknown]
